FAERS Safety Report 5714197-4 (Version None)
Quarter: 2008Q2

REPORT INFORMATION
  Report Type: 
  Country: None (occurrence: None)
  Receive Date: 20080423
  Receipt Date: 20071116
  Transmission Date: 20081010
  Serious: No
  Sender: FDA-Public Use
  Company Number: US-KINGPHARMUSA00001-K200701492

PATIENT

DRUGS (9)
  1. SKELAXIN [Suspect]
     Indication: SCIATICA
     Dosage: 800 MG, TID
     Route: 048
     Dates: start: 20071001, end: 20071101
  2. SKELAXIN [Suspect]
     Indication: ARTHRALGIA
     Dosage: 800 MG TID
     Route: 048
     Dates: start: 20071115
  3. CORTISONE [Suspect]
  4. PERCOCET [Concomitant]
     Indication: TENDONITIS
     Dates: start: 20071001
  5. VICODIN [Concomitant]
     Indication: TENDONITIS
     Dates: start: 20071001
  6. NEURONTIN [Concomitant]
     Indication: ARTHRALGIA
  7. LODINE [Concomitant]
     Indication: ARTHRALGIA
  8. BYETTA [Concomitant]
     Indication: DIABETES MELLITUS
     Dosage: UNK, BID
     Route: 058
  9. DIOVAN /01319601/ [Concomitant]

REACTIONS (6)
  - ERYTHEMA [None]
  - INFLUENZA [None]
  - PRURITUS [None]
  - RASH GENERALISED [None]
  - SCIATICA [None]
  - WEIGHT DECREASED [None]
